FAERS Safety Report 20008995 (Version 1)
Quarter: 2021Q4

REPORT INFORMATION
  Report Type: Spontaneous
  Country: FR (occurrence: FR)
  Receive Date: 20211028
  Receipt Date: 20211028
  Transmission Date: 20220303
  Serious: Yes (Hospitalization, Other)
  Sender: FDA-Public Use
  Company Number: FR-GLAXOSMITHKLINE-FRCH2021EME075505

PATIENT
  Age: 48 Year
  Sex: Female

DRUGS (4)
  1. IBUPROFEN [Suspect]
     Active Substance: IBUPROFEN
     Indication: Product used for unknown indication
     Dosage: UNK
  2. XANAX [Suspect]
     Active Substance: ALPRAZOLAM
     Indication: Product used for unknown indication
     Dosage: UNK UNK, QD
     Route: 048
  3. VALIUM [Suspect]
     Active Substance: DIAZEPAM
     Indication: Product used for unknown indication
     Dosage: 12 MG, QD
     Route: 048
  4. BIRODOGYL [Suspect]
     Active Substance: METRONIDAZOLE\SPIRAMYCIN
     Indication: Product used for unknown indication
     Dosage: UNK

REACTIONS (2)
  - Angioedema [Unknown]
  - Drug abuse [Not Recovered/Not Resolved]
